FAERS Safety Report 9726339 (Version 2)
Quarter: 2014Q1

REPORT INFORMATION
  Report Type: Spontaneous
  Country: US (occurrence: US)
  Receive Date: 20131203
  Receipt Date: 20140307
  Transmission Date: 20141002
  Serious: Yes (Hospitalization)
  Sender: FDA-Public Use
  Company Number: US-INCYTE CORPORATION-2013IN002815

PATIENT
  Sex: Male

DRUGS (22)
  1. JAKAFI [Suspect]
     Indication: MYELOFIBROSIS
     Dosage: 10 MG, BID
     Route: 048
     Dates: start: 20130827
  2. MULTI VIT [Concomitant]
  3. ALLEGRA [Concomitant]
  4. TRIAMCINOLONE [Concomitant]
  5. CA CITRATE [Concomitant]
  6. ZOVIRAX                            /00587301/ [Concomitant]
  7. PEPCID                             /00706001/ [Concomitant]
  8. NASONEX [Concomitant]
  9. VITAMIN B12                        /00056201/ [Concomitant]
  10. ULORIC [Concomitant]
  11. VITAMIN D                          /00107901/ [Concomitant]
  12. DILAUDID [Concomitant]
  13. TERAZOSIN [Concomitant]
  14. HYDRALAZINE [Concomitant]
  15. XARELTO [Concomitant]
  16. COLCHICINE [Concomitant]
  17. PROAIR                             /00139502/ [Concomitant]
  18. CARDURA [Concomitant]
  19. AMIODARONE [Concomitant]
  20. POTASSIUM [Concomitant]
  21. LASIX                              /00032601/ [Concomitant]
  22. SYNTHROID [Concomitant]

REACTIONS (3)
  - Cardiac disorder [Recovered/Resolved]
  - Malaise [Unknown]
  - Drug dose omission [Unknown]
